FAERS Safety Report 6764417-2 (Version None)
Quarter: 2010Q2

REPORT INFORMATION
  Report Type: 
  Country: None (occurrence: None)
  Receive Date: 20100610
  Receipt Date: 20100531
  Transmission Date: 20101027
  Serious: Yes (Other)
  Sender: FDA-Public Use
  Company Number: US-ROCHE-707076

PATIENT
  Age: 16 Year
  Sex: Female

DRUGS (6)
  1. ISOTRETINOIN [Suspect]
     Indication: MEDULLOBLASTOMA
     Dosage: TWO DOSES
     Route: 065
  2. VINCRISTINE [Suspect]
     Indication: MEDULLOBLASTOMA
     Route: 065
  3. CISPLATIN [Suspect]
     Indication: MEDULLOBLASTOMA
     Route: 065
  4. CISPLATIN [Suspect]
     Dosage: DOSE REDUCED
     Route: 065
  5. CYCLOPHOSPHAMIDE [Suspect]
     Indication: MEDULLOBLASTOMA
     Route: 065
  6. CARBOPLATIN [Concomitant]
     Indication: MEDULLOBLASTOMA

REACTIONS (2)
  - DEAFNESS [None]
  - ENCEPHALITIS [None]
